FAERS Safety Report 5027588-4 (Version None)
Quarter: 2006Q2

REPORT INFORMATION
  Report Type: 
  Country: None (occurrence: None)
  Receive Date: 20060614
  Receipt Date: 20060614
  Transmission Date: 20061013
  Serious: Yes (Hospitalization)
  Sender: FDA-Public Use
  Company Number: None

PATIENT
  Age: 64 Year
  Sex: Female
  Weight: 83.4 kg

DRUGS (2)
  1. ESTRACE [Suspect]
     Indication: ATROPHIC VULVOVAGINITIS
     Dosage: 4 GM / 2MGS/ 1 GM  2 WEEKS/2 WEEKS/ 3 X  VAG
     Route: 067
     Dates: start: 20060301, end: 20060601
  2. ESTRACE [Suspect]
     Indication: ATROPHIC VULVOVAGINITIS
     Dosage: 4 GM / 2MGS/ 1 GM  2 WEEKS/2 WEEKS/ 3 X  VAG
     Route: 067
     Dates: start: 20060301, end: 20060601

REACTIONS (2)
  - FALL [None]
  - INFECTION [None]
